FAERS Safety Report 7167968-4 (Version None)
Quarter: 2010Q4

REPORT INFORMATION
  Report Type: 
  Country: None (occurrence: None)
  Receive Date: 20101216
  Receipt Date: 20101208
  Transmission Date: 20110411
  Serious: Yes (Other)
  Sender: FDA-Public Use
  Company Number: US-PFIZER INC-2010167424

PATIENT
  Sex: Female
  Weight: 58.957 kg

DRUGS (4)
  1. GEODON [Suspect]
     Indication: PSYCHOTIC DISORDER
     Dosage: 120 MG, 1X/DAY
     Route: 048
     Dates: start: 20080101, end: 20090101
  2. GEODON [Suspect]
     Indication: BIPOLAR DISORDER
  3. LAMICTAL [Concomitant]
     Indication: BIPOLAR I DISORDER
     Dosage: 400 MG, 2X/DAY
     Route: 048
  4. ACYCLOVIR SODIUM [Concomitant]
     Indication: HERPES VIRUS INFECTION
     Dosage: 200 MG, 1X/DAY
     Route: 048

REACTIONS (1)
  - AKATHISIA [None]
